FAERS Safety Report 9123981 (Version 1)
Quarter: 2013Q1

REPORT INFORMATION
  Report Type: Spontaneous
  Country: PR (occurrence: PR)
  Receive Date: 20130227
  Receipt Date: 20130227
  Transmission Date: 20140127
  Serious: Yes (Other)
  Sender: FDA-Public Use
  Company Number: PR-009507513-1302PRI010407

PATIENT
  Sex: 0

DRUGS (3)
  1. PEGINTRON [Suspect]
     Indication: HEPATITIS C
     Dosage: UNK, ONCE
  2. REBETOL [Suspect]
  3. TELAPREVIR [Suspect]

REACTIONS (3)
  - Pyrexia [Unknown]
  - Nausea [Unknown]
  - Convulsion [Unknown]
